FAERS Safety Report 8306929-6 (Version None)
Quarter: 2012Q2

REPORT INFORMATION
  Report Type: 
  Country: None (occurrence: None)
  Receive Date: 20120420
  Receipt Date: 20120411
  Transmission Date: 20120825
  Serious: Yes (Other)
  Sender: FDA-Public Use
  Company Number: ACO_29919_2012

PATIENT
  Sex: Female

DRUGS (5)
  1. ANTIDEPRESSANTS [Concomitant]
  2. AMPYRA [Suspect]
     Indication: PRODUCT USED FOR UNKNOWN INDICATION
     Dosage: 10 MG, QD
     Dates: start: 20110701, end: 20120101
  3. AMPYRA [Suspect]
     Indication: PRODUCT USED FOR UNKNOWN INDICATION
     Dosage: 10 MG, QD
     Dates: start: 20120101, end: 20120101
  4. AMPYRA [Suspect]
     Indication: PRODUCT USED FOR UNKNOWN INDICATION
     Dosage: 10 MG, QD
     Dates: start: 20120101
  5. ALL OTHER THERAPEUTIC PRODUCTS [Concomitant]

REACTIONS (7)
  - MULTIPLE SCLEROSIS RELAPSE [None]
  - CONVULSION [None]
  - DIZZINESS [None]
  - TREMOR [None]
  - HYPERVENTILATION [None]
  - INAPPROPRIATE SCHEDULE OF DRUG ADMINISTRATION [None]
  - NAUSEA [None]
